FAERS Safety Report 9349235 (Version 2)
Quarter: 2013Q2

REPORT INFORMATION
  Report Type: Report from Study
  Country: DE (occurrence: DE)
  Receive Date: 20130614
  Receipt Date: 20130624
  Transmission Date: 20140414
  Serious: Yes (Hospitalization)
  Sender: FDA-Public Use
  Company Number: DE-CELGENEUS-062-C4047-13060522

PATIENT
  Age: 74 Year
  Sex: Male
  Weight: 71 kg

DRUGS (17)
  1. CC-4047 [Suspect]
     Indication: PLASMA CELL MYELOMA
     Dosage: 4 MILLIGRAM
     Route: 048
     Dates: start: 20130422, end: 20130512
  2. CC-4047 [Suspect]
     Dosage: 4 MILLIGRAM
     Route: 048
     Dates: start: 20130521, end: 20130604
  3. DEXAMETHASONE [Suspect]
     Indication: PLASMA CELL MYELOMA
     Route: 065
     Dates: start: 20130422, end: 20130520
  4. DEXAMETHASONE [Suspect]
     Route: 065
     Dates: start: 20130521, end: 20130604
  5. RAMIPRIL [Concomitant]
     Indication: HYPERTENSION
     Dosage: 10 MILLIGRAM
     Route: 048
     Dates: start: 201203
  6. THIAMIZOL [Concomitant]
     Indication: HYPERTHYROIDISM
     Dosage: 10 MILLIGRAM
     Route: 048
     Dates: start: 20130213, end: 20130421
  7. THIAMIZOL [Concomitant]
     Dosage: 5 MILLIGRAM
     Route: 048
     Dates: start: 20130422
  8. FENTANYL [Concomitant]
     Indication: BACK PAIN
     Route: 062
     Dates: start: 20130213
  9. INSULIN [Concomitant]
     Indication: TYPE 2 DIABETES MELLITUS
     Route: 058
     Dates: start: 20130213
  10. PANKREATIN [Concomitant]
     Indication: PANCREATIC INSUFFICIENCY
     Dosage: 585.6 MILLIGRAM
     Route: 048
     Dates: start: 20130213
  11. GABAPENTIN [Concomitant]
     Indication: POST HERPETIC NEURALGIA
     Dosage: 600 MILLIGRAM
     Route: 048
     Dates: start: 20130422
  12. ACETYLSALICYLIC ACID [Concomitant]
     Indication: THROMBOSIS PROPHYLAXIS
     Dosage: 100 MILLIGRAM
     Route: 048
     Dates: start: 20130422
  13. PANTOPRAZOLE [Concomitant]
     Indication: GASTRITIS PROPHYLAXIS
     Dosage: 20 MILLIGRAM
     Route: 048
     Dates: start: 20130422
  14. ACICLOVIR [Concomitant]
     Indication: PROPHYLAXIS
     Dosage: 600 MILLIGRAM
     Route: 048
     Dates: start: 20130422, end: 20130507
  15. METAMIZOLE [Concomitant]
     Indication: BACK PAIN
     Dosage: 80 DROPS
     Route: 048
     Dates: start: 20130422, end: 20130507
  16. PEGFILGRASTIM [Concomitant]
     Indication: NEUTROPENIA
     Dosage: 6 MILLIGRAM
     Route: 058
     Dates: start: 20130507, end: 20130507
  17. SEVREDOL [Concomitant]
     Indication: BACK PAIN
     Route: 048
     Dates: start: 20130507

REACTIONS (2)
  - Pneumonia [Recovered/Resolved]
  - Neck pain [Recovered/Resolved]
